FAERS Safety Report 9179781 (Version 1)
Quarter: 2012Q4

REPORT INFORMATION
  Report Type: 
  Country: SE (occurrence: SE)
  Receive Date: 20121029
  Receipt Date: 20121029
  Transmission Date: 20130627
  Serious: Yes (Other)
  Sender: FDA-Public Use
  Company Number: SE-TEVA-366975ISR

PATIENT
  Age: 56 Year
  Sex: Male

DRUGS (3)
  1. DOXYFERM [Suspect]
     Indication: INFECTION
     Dosage: 200 Milligram Daily;
     Route: 048
     Dates: start: 20121001
  2. DOXYFERM [Suspect]
     Indication: NASOPHARYNGITIS
  3. DOXYFERM [Suspect]
     Indication: MYALGIA

REACTIONS (1)
  - Confusional state [Recovered/Resolved]
